FAERS Safety Report 7474662-9 (Version None)
Quarter: 2011Q2

REPORT INFORMATION
  Report Type: 
  Country: None (occurrence: None)
  Receive Date: 20110512
  Receipt Date: 20110503
  Transmission Date: 20111010
  Serious: Yes (Hospitalization)
  Sender: FDA-Public Use
  Company Number: US-JNJFOC-20101000557

PATIENT
  Sex: Female

DRUGS (5)
  1. DILAUDID [Concomitant]
     Route: 065
  2. CRESTOR [Concomitant]
     Route: 065
  3. TOPAMAX [Concomitant]
     Route: 065
  4. NUCYNTA [Suspect]
     Indication: PAIN
     Route: 048
  5. FENTANYL [Concomitant]
     Route: 065

REACTIONS (2)
  - MEMORY IMPAIRMENT [None]
  - CONFUSIONAL STATE [None]
